FAERS Safety Report 10157071 (Version 1)
Quarter: 2014Q2

REPORT INFORMATION
  Report Type: Spontaneous
  Country: US (occurrence: US)
  Receive Date: 20140507
  Receipt Date: 20140507
  Transmission Date: 20141212
  Serious: No
  Sender: FDA-Public Use
  Company Number: US-PFIZER INC-2014121008

PATIENT
  Sex: Female

DRUGS (19)
  1. MEDROL [Suspect]
     Indication: FIBROMYALGIA
     Dosage: UNK
  2. MEDROL [Suspect]
     Indication: MIGRAINE
  3. MEDROL [Suspect]
     Indication: PAIN
  4. HALCION [Suspect]
  5. BOTOX [Suspect]
     Indication: FIBROMYALGIA
     Dosage: UNK
  6. BOTOX [Suspect]
     Indication: MIGRAINE
  7. BOTOX [Suspect]
     Indication: PAIN
  8. FLUOXETINE [Suspect]
     Indication: FIBROMYALGIA
     Dosage: UNK
  9. FLUOXETINE [Suspect]
     Indication: PAIN
  10. FLUOXETINE [Suspect]
     Indication: MIGRAINE
  11. FLOMAX [Suspect]
     Indication: MIGRAINE
     Dosage: UNK
  12. FLOMAX [Suspect]
     Indication: FIBROMYALGIA
  13. FLOMAX [Suspect]
     Indication: PAIN
  14. TOPAMAX [Suspect]
     Indication: MIGRAINE
     Dosage: UNK
  15. TOPAMAX [Suspect]
     Indication: FIBROMYALGIA
  16. TOPAMAX [Suspect]
     Indication: PAIN
  17. TRAMADOL [Suspect]
     Indication: MIGRAINE
     Dosage: UNK
  18. TRAMADOL [Suspect]
     Indication: PAIN
  19. TRAMADOL [Suspect]
     Indication: FIBROMYALGIA

REACTIONS (1)
  - Drug ineffective for unapproved indication [Unknown]
